FAERS Safety Report 8368146-3 (Version None)
Quarter: 2012Q2

REPORT INFORMATION
  Report Type: 
  Country: None (occurrence: None)
  Receive Date: 20120517
  Receipt Date: 20120508
  Transmission Date: 20120825
  Serious: Yes (Other)
  Sender: FDA-Public Use
  Company Number: US-ROCHE-713026

PATIENT
  Sex: Female

DRUGS (1)
  1. AVASTIN [Suspect]
     Indication: BREAST CANCER METASTATIC

REACTIONS (6)
  - KNEE OPERATION [None]
  - EPISTAXIS [None]
  - RECTAL HAEMORRHAGE [None]
  - DYSPHONIA [None]
  - LARYNGITIS [None]
  - ARTHRALGIA [None]
